FAERS Safety Report 20688554 (Version 7)
Quarter: 2022Q4

REPORT INFORMATION
  Report Type: Report from Study
  Country: ES (occurrence: ES)
  Receive Date: 20220408
  Receipt Date: 20221205
  Transmission Date: 20230112
  Serious: Yes (Hospitalization)
  Sender: FDA-Public Use
  Company Number: ES-NOVARTISPH-NVSC2022ES076893

PATIENT
  Age: 60 Year
  Sex: Male
  Weight: 64 kg

DRUGS (4)
  1. NAPORAFENIB [Suspect]
     Active Substance: NAPORAFENIB
     Indication: Non-small cell lung cancer
     Dosage: 200 MG, Q12H
     Route: 048
     Dates: start: 20210202
  2. NAPORAFENIB [Suspect]
     Active Substance: NAPORAFENIB
     Dosage: 200 MG, Q12H
     Route: 048
     Dates: start: 20220412
  3. TRAMETINIB [Suspect]
     Active Substance: TRAMETINIB
     Indication: Non-small cell lung cancer
     Dosage: 0.5 MG, QD
     Route: 048
     Dates: start: 20210202
  4. TRAMETINIB [Suspect]
     Active Substance: TRAMETINIB
     Dosage: 0.5 MG, QD
     Route: 048
     Dates: start: 20220412

REACTIONS (2)
  - Pustule [Recovering/Resolving]
  - Dermatosis [Recovering/Resolving]

NARRATIVE: CASE EVENT DATE: 20220331
